FAERS Safety Report 10981351 (Version 2)
Quarter: 2015Q2

REPORT INFORMATION
  Report Type: Spontaneous
  Country: US (occurrence: US)
  Receive Date: 20150402
  Receipt Date: 20150525
  Transmission Date: 20150821
  Serious: No
  Sender: FDA-Public Use
  Company Number: US-JNJFOC-20140818602

PATIENT
  Age: 89 Year
  Sex: Male
  Weight: 68.04 kg

DRUGS (3)
  1. IMODIUM MULTI-SYMPTOM RELIEF [Suspect]
     Active Substance: DIMETHICONE\LOPERAMIDE HYDROCHLORIDE
     Route: 048
  2. IMODIUM MULTI-SYMPTOM RELIEF [Suspect]
     Active Substance: DIMETHICONE\LOPERAMIDE HYDROCHLORIDE
     Indication: DIARRHOEA
     Dosage: 3 CAPLETS A DAY INCLUDING 2 CAPLETS FOR THE INITIAL DOSE AND 1 CAPLET FOR THE SECOND AND FINAL DOSE.
     Route: 048
     Dates: start: 201408
  3. CULTURELLE [Concomitant]
     Active Substance: LACTOBACILLUS RHAMNOSUS
     Indication: DYSPEPSIA
     Route: 065
     Dates: start: 201408

REACTIONS (3)
  - Therapeutic response decreased [Unknown]
  - Product packaging issue [Unknown]
  - Product lot number issue [Unknown]

NARRATIVE: CASE EVENT DATE: 201408
